FAERS Safety Report 20049973 (Version 1)
Quarter: 2021Q4

REPORT INFORMATION
  Report Type: Spontaneous
  Country: CN (occurrence: CN)
  Receive Date: 20211109
  Receipt Date: 20211109
  Transmission Date: 20220303
  Serious: Yes (Other)
  Sender: FDA-Public Use
  Company Number: CN-PFIZER INC-202101450535

PATIENT
  Age: 14 Day
  Sex: Female
  Weight: 3.05 kg

DRUGS (2)
  1. UNASYN [Suspect]
     Active Substance: AMPICILLIN SODIUM\SULBACTAM SODIUM
     Indication: Neonatal pneumonia
     Dosage: 0.15 G, 2X/DAY
     Route: 041
     Dates: start: 20210901, end: 20210910
  2. SODIUM CHLORIDE [Concomitant]
     Active Substance: SODIUM CHLORIDE
     Indication: Vehicle solution use
     Dosage: 2 ML, 2X/DAY
     Route: 041
     Dates: start: 20210901, end: 20210910

REACTIONS (2)
  - Diarrhoea neonatal [Recovering/Resolving]
  - Abdominal discomfort [Recovering/Resolving]

NARRATIVE: CASE EVENT DATE: 20210903
